FAERS Safety Report 7359318-5 (Version None)
Quarter: 2011Q1

REPORT INFORMATION
  Report Type: 
  Country: None (occurrence: None)
  Receive Date: 20110317
  Receipt Date: 20090821
  Transmission Date: 20110831
  Serious: No
  Sender: FDA-Public Use
  Company Number: US-PFIZER INC-2009258494

PATIENT
  Sex: Female
  Weight: 44.9 kg

DRUGS (12)
  1. PREMARIN [Concomitant]
     Dosage: UNK
  2. MEDROXYPROGESTERONE [Concomitant]
     Dosage: UNK
  3. NORVASC [Suspect]
  4. DURAGESIC-50 [Concomitant]
     Dosage: UNK
  5. AMLODIPINE BESYLATE [Suspect]
     Indication: HYPERTENSION
     Dosage: 5 MG, 1X/DAY
     Route: 048
     Dates: start: 20070101, end: 20090818
  6. LEVOXYL [Concomitant]
     Dosage: UNK
  7. AZMACORT [Concomitant]
     Dosage: UNK
  8. FOSAMAX [Concomitant]
     Dosage: UNK
  9. AMBIEN [Concomitant]
     Dosage: UNK
  10. LIDODERM [Concomitant]
     Dosage: UNK
  11. VALSARTAN [Concomitant]
     Dosage: UNK
  12. SEREVENT [Concomitant]
     Dosage: UNK

REACTIONS (2)
  - DIZZINESS [None]
  - INSOMNIA [None]
